FAERS Safety Report 26052924 (Version 1)
Quarter: 2025Q4

REPORT INFORMATION
  Report Type: Spontaneous
  Country: EU (occurrence: EU)
  Receive Date: 20251117
  Receipt Date: 20251117
  Transmission Date: 20260117
  Serious: Yes (Other)
  Sender: BAXTER
  Company Number: None

PATIENT
  Age: 69 Year
  Sex: Female

DRUGS (2)
  1. METRONIDAZOLE [Suspect]
     Active Substance: METRONIDAZOLE
     Indication: Tooth infection
     Dosage: 3 DOSAGE FORM, 1 TOTAL
     Route: 065
     Dates: start: 202312, end: 202312
  2. AZITHROMYCIN [Suspect]
     Active Substance: AZITHROMYCIN
     Indication: Tooth infection
     Dosage: 3 DOSAGE FORM, 1 TOTAL
     Route: 065
     Dates: start: 202312, end: 202312

REACTIONS (1)
  - Angioedema [Recovered/Resolved]
